FAERS Safety Report 4645901-4 (Version None)
Quarter: 2005Q2

REPORT INFORMATION
  Report Type: 
  Country: None (occurrence: None)
  Receive Date: 20050427
  Receipt Date: 20050415
  Transmission Date: 20051028
  Serious: Yes (Other)
  Sender: FDA-Public Use
  Company Number: US-BRISTOL-MYERS SQUIBB COMPANY-12936217

PATIENT
  Age: 66 Year
  Sex: Female

DRUGS (2)
  1. ESTRACE [Suspect]
     Indication: HORMONE REPLACEMENT THERAPY
     Route: 048
     Dates: start: 20000311, end: 20040301
  2. ESTRACE [Suspect]

REACTIONS (2)
  - DEPRESSION [None]
  - OVARIAN CANCER [None]
